FAERS Safety Report 15353650 (Version 3)
Quarter: 2020Q1

REPORT INFORMATION
  Report Type: Spontaneous
  Country: US (occurrence: US)
  Receive Date: 20180905
  Receipt Date: 20200304
  Transmission Date: 20200409
  Serious: No
  Sender: FDA-Public Use
  Company Number: US-PTC THERAPEUTICS, INC.-US-2018PTC000691

PATIENT
  Age: 6 Year
  Sex: Male
  Weight: 26.89 kg

DRUGS (2)
  1. EMFLAZA [Suspect]
     Active Substance: DEFLAZACORT
     Dosage: 6 ML (136.5 MG) ON SATURDAYS AND SUNDAYS
     Route: 048
  2. EMFLAZA [Suspect]
     Active Substance: DEFLAZACORT
     Indication: DUCHENNE MUSCULAR DYSTROPHY
     Dosage: 4 ML, ON SATURDAY AND SUNDAY
     Route: 048
     Dates: start: 20170625

REACTIONS (3)
  - Off label use [Unknown]
  - Hirsutism [Not Recovered/Not Resolved]
  - Weight increased [Not Recovered/Not Resolved]

NARRATIVE: CASE EVENT DATE: 20170625
